FAERS Safety Report 8785149 (Version 2)
Quarter: 2012Q4

REPORT INFORMATION
  Report Type: Spontaneous
  Country: CA (occurrence: None)
  Receive Date: 20120829
  Receipt Date: 20120913
  Transmission Date: 20130627
  Serious: Yes (Other)
  Sender: FDA-Public Use
  Company Number: CA-1193688

PATIENT
  Age: 64 Year
  Sex: Female
  Weight: 61.24 kg

DRUGS (1)
  1. TRAVATAN Z [Suspect]
     Indication: GLAUCOMA
     Route: 047
     Dates: start: 20120120

REACTIONS (4)
  - Eye injury [None]
  - Eye haemorrhage [None]
  - Ocular discomfort [None]
  - Ocular hyperaemia [None]
